FAERS Safety Report 9378514 (Version 2)
Quarter: 2013Q3

REPORT INFORMATION
  Report Type: Spontaneous
  Country: FR (occurrence: FR)
  Receive Date: 20130702
  Receipt Date: 20130711
  Transmission Date: 20140515
  Serious: Yes (Death, Other)
  Sender: FDA-Public Use
  Company Number: FR-AMGEN-FRASP2013046013

PATIENT
  Age: 49 Year
  Sex: Male

DRUGS (5)
  1. ENBREL [Suspect]
     Indication: ERYTHRODERMIC PSORIASIS
     Dosage: 50 MG, WEEKLY
     Route: 065
  2. ENBREL [Suspect]
     Indication: PSORIASIS
  3. INFLIXIMAB [Suspect]
     Dosage: UNK
  4. ADALIMUMAB [Suspect]
     Dosage: UNK
  5. STELARA [Suspect]
     Dosage: UNK

REACTIONS (3)
  - Death [Fatal]
  - Hepatic enzyme increased [Unknown]
  - Drug effect decreased [Unknown]
